FAERS Safety Report 26120398 (Version 1)
Quarter: 2025Q4

REPORT INFORMATION
  Report Type: Spontaneous
  Country: US (occurrence: US)
  Receive Date: 20251204
  Receipt Date: 20251204
  Transmission Date: 20260118
  Serious: No
  Sender: TEVA
  Company Number: US-TEVA-VS-3395664

PATIENT
  Age: 77 Year
  Sex: Male

DRUGS (1)
  1. TREPROSTINIL [Suspect]
     Active Substance: TREPROSTINIL
     Indication: Product used for unknown indication
     Dosage: TREPROSTINIL, MULTIDOSE VIAL 50 MG 20ML. NDC NO: 00703067601
     Route: 065

REACTIONS (2)
  - Infusion related reaction [Unknown]
  - Product reconstitution quality issue [Unknown]
